FAERS Safety Report 4603110-9 (Version None)
Quarter: 2005Q1

REPORT INFORMATION
  Report Type: 
  Country: None (occurrence: None)
  Receive Date: 20050307
  Receipt Date: 20050222
  Transmission Date: 20050727
  Serious: Yes (Life-Threatening, Hospitalization)
  Sender: FDA-Public Use
  Company Number: 2005-00358

PATIENT
  Age: 60 Year
  Sex: Male
  Weight: 84.3 kg

DRUGS (1)
  1. VELCADE [Suspect]
     Indication: MULTIPLE MYELOMA
     Dosage: 2.60 MG, INTRAVENOUS
     Route: 042
     Dates: start: 20041129

REACTIONS (6)
  - BACK PAIN [None]
  - CONSTIPATION [None]
  - PNEUMONIA [None]
  - SEPSIS [None]
  - SPINAL CORD COMPRESSION [None]
  - URINARY RETENTION [None]
